FAERS Safety Report 16008072 (Version 3)
Quarter: 2019Q1

REPORT INFORMATION
  Report Type: Report from Study
  Country: PL (occurrence: PL)
  Receive Date: 20190226
  Receipt Date: 20190313
  Transmission Date: 20190418
  Serious: Yes (Hospitalization)
  Sender: FDA-Public Use
  Company Number: PL-ASTRAZENECA-2019SE24061

PATIENT
  Age: 68 Year
  Sex: Female

DRUGS (21)
  1. CONCOR COR [Concomitant]
     Active Substance: BISOPROLOL FUMARATE
     Indication: HYPERTENSION
     Route: 048
     Dates: start: 2004
  2. CLEMASTINE [Concomitant]
     Active Substance: CLEMASTINE
     Indication: PREMEDICATION
     Dosage: 2.0MG ONCE/SINGLE ADMINISTRATION
     Route: 042
     Dates: start: 20190128, end: 20190128
  3. CLEMASTINE [Concomitant]
     Active Substance: CLEMASTINE
     Indication: PREMEDICATION
     Dosage: ONCE/SINGLE ADMINISTRATION
     Dates: start: 20190208, end: 20190212
  4. ACALABRUTINIB. [Suspect]
     Active Substance: ACALABRUTINIB
     Indication: MANTLE CELL LYMPHOMA
     Route: 048
     Dates: start: 20190219, end: 20190224
  5. RITUXIMAB. [Suspect]
     Active Substance: RITUXIMAB
     Indication: MANTLE CELL LYMPHOMA
     Dosage: 618.75MG ONCE/SINGLE ADMINISTRATION
     Route: 042
     Dates: start: 20190128, end: 20190128
  6. BENDAMUSTINE [Suspect]
     Active Substance: BENDAMUSTINE
     Indication: MANTLE CELL LYMPHOMA
     Dosage: 148.5MG ONCE/SINGLE ADMINISTRATION
     Route: 042
     Dates: start: 20190128, end: 20190128
  7. HYDROCORTISONE. [Concomitant]
     Active Substance: HYDROCORTISONE
     Indication: PREMEDICATION
     Dosage: 100.0MG ONCE/SINGLE ADMINISTRATION
     Route: 042
     Dates: start: 20190128, end: 20190128
  8. ONDANSETRON [Concomitant]
     Active Substance: ONDANSETRON
     Indication: PREMEDICATION
     Dosage: 8.0MG ONCE/SINGLE ADMINISTRATION
     Route: 042
     Dates: start: 20190129, end: 20190129
  9. PARACETAMOL [Concomitant]
     Active Substance: ACETAMINOPHEN
     Indication: PREMEDICATION
     Dosage: 1.0G ONCE/SINGLE ADMINISTRATION
     Route: 042
     Dates: start: 20190128, end: 20190128
  10. ACALABRUTINIB. [Suspect]
     Active Substance: ACALABRUTINIB
     Indication: MANTLE CELL LYMPHOMA
     Route: 048
     Dates: start: 20190128, end: 20190207
  11. RITUXIMAB. [Suspect]
     Active Substance: RITUXIMAB
     Indication: MANTLE CELL LYMPHOMA
     Dosage: 607.5MG ONCE/SINGLE ADMINISTRATION
     Route: 042
     Dates: start: 20190304, end: 20190304
  12. BENDAMUSTINE [Suspect]
     Active Substance: BENDAMUSTINE
     Indication: MANTLE CELL LYMPHOMA
     Dosage: 151.2MG ONCE/SINGLE ADMINISTRATION
     Route: 042
     Dates: start: 20190129, end: 20190129
  13. BENDAMUSTINE [Suspect]
     Active Substance: BENDAMUSTINE
     Indication: MANTLE CELL LYMPHOMA
     Dosage: 113.4MG ONCE/SINGLE ADMINISTRATION
     Route: 042
     Dates: start: 20190304, end: 20190304
  14. CLEMASTINE [Concomitant]
     Active Substance: CLEMASTINE
     Indication: PREMEDICATION
     Dosage: 2.0MG ONCE/SINGLE ADMINISTRATION
     Route: 042
     Dates: start: 20190129, end: 20190129
  15. ACALABRUTINIB. [Suspect]
     Active Substance: ACALABRUTINIB
     Indication: MANTLE CELL LYMPHOMA
     Route: 048
     Dates: start: 20190225
  16. ONDANSETRON [Concomitant]
     Active Substance: ONDANSETRON
     Indication: PREMEDICATION
     Route: 042
     Dates: start: 20190128, end: 20190128
  17. ACALABRUTINIB. [Suspect]
     Active Substance: ACALABRUTINIB
     Indication: MANTLE CELL LYMPHOMA
     Route: 048
     Dates: start: 20190208, end: 20190208
  18. TRITACE [Concomitant]
     Active Substance: RAMIPRIL
     Indication: HYPERTENSION
     Route: 048
     Dates: start: 2004
  19. DEXAK [Concomitant]
     Indication: SPINAL PAIN
     Route: 048
     Dates: start: 20190207, end: 20190209
  20. BENDAMUSTINE [Suspect]
     Active Substance: BENDAMUSTINE
     Indication: MANTLE CELL LYMPHOMA
     Dosage: 114.8MG ONCE/SINGLE ADMINISTRATION
     Route: 042
     Dates: start: 20190305, end: 20190305
  21. ACALABRUTINIB. [Suspect]
     Active Substance: ACALABRUTINIB
     Indication: MANTLE CELL LYMPHOMA
     Route: 048
     Dates: start: 20190218, end: 20190218

REACTIONS (1)
  - Urticaria [Recovered/Resolved]

NARRATIVE: CASE EVENT DATE: 20190208
